FAERS Safety Report 8559066-X (Version None)
Quarter: 2012Q3

REPORT INFORMATION
  Report Type: 
  Country: None (occurrence: None)
  Receive Date: 20120802
  Receipt Date: 20120725
  Transmission Date: 20120928
  Serious: No
  Sender: FDA-Public Use
  Company Number: US-BIOGENIDEC-2012BI027807

PATIENT
  Age: 31 Year
  Sex: Female

DRUGS (1)
  1. TYSABRI [Suspect]
     Indication: MULTIPLE SCLEROSIS
     Route: 042
     Dates: start: 20100611

REACTIONS (7)
  - BACK PAIN [None]
  - PYREXIA [None]
  - HYPOTENSION [None]
  - MUSCULOSKELETAL PAIN [None]
  - HEART RATE INCREASED [None]
  - HEADACHE [None]
  - CHILLS [None]
